FAERS Safety Report 8848088 (Version 1)
Quarter: 2012Q4

REPORT INFORMATION
  Report Type: 
  Country: LV (occurrence: LV)
  Receive Date: 20121018
  Receipt Date: 20121018
  Transmission Date: 20130627
  Serious: Yes (Death, Hospitalization)
  Sender: FDA-Public Use
  Company Number: LV-ROCHE-1146748

PATIENT
  Age: 56 Year
  Sex: Male
  Weight: 76 kg

DRUGS (1)
  1. XELODA [Suspect]
     Indication: COLORECTAL CANCER
     Route: 048
     Dates: start: 20121001, end: 20121005

REACTIONS (4)
  - Oesophagitis [Fatal]
  - Stomatitis [Not Recovered/Not Resolved]
  - Gingivitis [Not Recovered/Not Resolved]
  - Dermatitis [Not Recovered/Not Resolved]
